FAERS Safety Report 5352645-2 (Version None)
Quarter: 2007Q2

REPORT INFORMATION
  Report Type: 
  Country: None (occurrence: None)
  Receive Date: 20070611
  Receipt Date: 20070530
  Transmission Date: 20071010
  Serious: Yes (Other)
  Sender: FDA-Public Use
  Company Number: US-ROCHE-500009

PATIENT
  Age: 39 Year
  Sex: Female

DRUGS (2)
  1. PEGASYS [Suspect]
     Route: 065
     Dates: start: 20070519
  2. RIBAVIRIN [Suspect]
     Route: 065
     Dates: start: 20070519

REACTIONS (5)
  - DYSPNOEA [None]
  - FAECES PALE [None]
  - HEPATIC PAIN [None]
  - LIVER DISORDER [None]
  - RASH [None]
